FAERS Safety Report 5300538-9 (Version None)
Quarter: 2007Q2

REPORT INFORMATION
  Report Type: 
  Country: None (occurrence: None)
  Receive Date: 20070413
  Receipt Date: 20070413
  Transmission Date: 20071010
  Serious: Yes (Death)
  Sender: FDA-Public Use
  Company Number: None

PATIENT
  Age: 30 Year
  Sex: Male
  Weight: 176.9028 kg

DRUGS (3)
  1. METHADONE HCL [Suspect]
     Indication: ANXIETY
     Dosage: PO
     Route: 048
     Dates: start: 20070115, end: 20070118
  2. METHADONE HCL [Suspect]
     Indication: DRUG DEPENDENCE
     Dosage: PO
     Route: 048
     Dates: start: 20070115, end: 20070118
  3. XANAX [Suspect]

REACTIONS (2)
  - RESPIRATORY ARREST [None]
  - SELF-MEDICATION [None]
